FAERS Safety Report 10199429 (Version 1)
Quarter: 2014Q2

REPORT INFORMATION
  Report Type: Spontaneous
  Country: US (occurrence: US)
  Receive Date: 20140527
  Receipt Date: 20140527
  Transmission Date: 20141212
  Serious: No
  Sender: FDA-Public Use
  Company Number: US-NOVEN-14US008645

PATIENT
  Sex: Male

DRUGS (2)
  1. DAYTRANA [Suspect]
     Indication: ATTENTION DEFICIT/HYPERACTIVITY DISORDER
     Dosage: 30 MG, QD
     Route: 062
     Dates: start: 201312
  2. DAYTRANA [Suspect]
     Dosage: 20 MG, UNK

REACTIONS (2)
  - Affect lability [Not Recovered/Not Resolved]
  - Chest pain [Not Recovered/Not Resolved]
